FAERS Safety Report 4549834-3 (Version None)
Quarter: 2004Q4

REPORT INFORMATION
  Report Type: 
  Country: None (occurrence: None)
  Receive Date: 20041227
  Receipt Date: 20041027
  Transmission Date: 20050328
  Serious: No
  Sender: FDA-Public Use
  Company Number: 04P-163-0278901-00

PATIENT
  Age: 53 Year
  Sex: Female
  Weight: 79.8331 kg

DRUGS (8)
  1. HUMIRA [Suspect]
     Indication: RHEUMATOID ARTHRITIS
     Dosage: 1 IN 2 WK, SUBCUTANEOUS
     Route: 058
     Dates: start: 20040401
  2. METHIOTREXATE [Concomitant]
  3. FOLIC ACID [Concomitant]
  4. ATENOLOL [Concomitant]
  5. VENLAFAXINE HCL [Concomitant]
  6. TIZANIDINE [Concomitant]
  7. BUCINDOLOL HYDROCHLORIDE [Concomitant]
  8. TRAZODONE [Concomitant]

REACTIONS (1)
  - UPPER RESPIRATORY TRACT INFECTION [None]
